FAERS Safety Report 7332241-8 (Version None)
Quarter: 2011Q1

REPORT INFORMATION
  Report Type: 
  Country: None (occurrence: None)
  Receive Date: 20110304
  Receipt Date: 20110223
  Transmission Date: 20110831
  Serious: No
  Sender: FDA-Public Use
  Company Number: US-JNJFOC-20110207818

PATIENT
  Sex: Female
  Weight: 123.83 kg

DRUGS (4)
  1. COGENTIN [Concomitant]
     Dosage: THREE DAILY FOR MOVEMENT PROBLEMS
     Route: 048
  2. INVEGA SUSTENNA [Suspect]
     Indication: SCHIZOPHRENIA
     Route: 030
  3. ABILIFY [Concomitant]
     Route: 048
  4. RISPERDAL [Concomitant]
     Route: 048

REACTIONS (2)
  - INJECTION SITE ABSCESS [None]
  - SKIN IRRITATION [None]
